FAERS Safety Report 10251252 (Version 1)
Quarter: 2014Q2

REPORT INFORMATION
  Report Type: Spontaneous
  Country: US (occurrence: US)
  Receive Date: 20140621
  Receipt Date: 20140621
  Transmission Date: 20141212
  Serious: Yes (Hospitalization)
  Sender: FDA-Public Use
  Company Number: US-GILEAD-2014-0106185

PATIENT
  Age: 60 Year
  Sex: Female

DRUGS (15)
  1. LETAIRIS [Suspect]
     Indication: PULMONARY HYPERTENSION
     Dosage: 10 MG, QD
     Route: 065
     Dates: start: 20130606
  2. ATORVASTATIN [Concomitant]
  3. DILTIAZEM [Concomitant]
  4. PROAIR                             /00139502/ [Concomitant]
  5. LYRICA [Concomitant]
  6. NEXIUM                             /01479302/ [Concomitant]
  7. SILDENAFIL [Concomitant]
  8. GABAPENTIN [Concomitant]
  9. NOVOLOG [Concomitant]
  10. ALLOPURINOL [Concomitant]
  11. FERROUS SULFATE [Concomitant]
  12. SPIRIVA [Concomitant]
  13. LANTUS [Concomitant]
  14. VITAMIN B12                        /07503801/ [Concomitant]
  15. ADVAIR [Concomitant]

REACTIONS (4)
  - Abdominal distension [Unknown]
  - Ulcer haemorrhage [Unknown]
  - Unevaluable event [Unknown]
  - Haemoglobin decreased [Unknown]
